FAERS Safety Report 14240372 (Version 5)
Quarter: 2023Q4

REPORT INFORMATION
  Report Type: Report from Study
  Country: DE (occurrence: DE)
  Receive Date: 20171130
  Receipt Date: 20231017
  Transmission Date: 20240109
  Serious: Yes (Hospitalization)
  Sender: FDA-Public Use
  Company Number: DE-BOEHRINGERINGELHEIM-2017-BI-046969

PATIENT
  Age: 62 Year
  Sex: Female
  Weight: 125.7 kg

DRUGS (5)
  1. DOCETAXEL [Suspect]
     Active Substance: DOCETAXEL
     Indication: Adenocarcinoma
     Dosage: TOTAL DAILY DOSE: 75 MG/M2 BSA
     Route: 042
     Dates: start: 20170420
  2. DOCETAXEL [Suspect]
     Active Substance: DOCETAXEL
     Dosage: TOTAL DAILY DOSE: 75 MG/M2 BSA
     Route: 042
     Dates: start: 20170720
  3. NINTEDANIB [Suspect]
     Active Substance: NINTEDANIB
     Indication: Adenocarcinoma
     Dosage: 400 MG, 1X/DAY
     Route: 048
     Dates: start: 20170421
  4. NINTEDANIB [Suspect]
     Active Substance: NINTEDANIB
     Dosage: 400 MG, 1X/DAY
     Route: 048
     Dates: start: 20170721
  5. DOLOPHINE [Suspect]
     Active Substance: METHADONE HYDROCHLORIDE
     Indication: Prophylaxis
     Dosage: TOTAL DAILY DOSE: 25 DROPS
     Route: 048
     Dates: start: 20170729

REACTIONS (9)
  - Decreased appetite [Not Recovered/Not Resolved]
  - C-reactive protein increased [Not Recovered/Not Resolved]
  - Oropharyngeal pain [Not Recovered/Not Resolved]
  - Abdominal pain upper [Not Recovered/Not Resolved]
  - White blood cell count decreased [Recovered/Resolved]
  - White blood cell count decreased [Recovered/Resolved]
  - Fatigue [Recovered/Resolved]
  - Diarrhoea [Recovered/Resolved]
  - Pathogen resistance [Not Recovered/Not Resolved]

NARRATIVE: CASE EVENT DATE: 20170728
